FAERS Safety Report 22283541 (Version 1)
Quarter: 2023Q2

REPORT INFORMATION
  Report Type: Spontaneous
  Country: US (occurrence: US)
  Receive Date: 20230504
  Receipt Date: 20230504
  Transmission Date: 20230721
  Serious: No
  Sender: FDA-Public Use
  Company Number: US-SA-SAC20230502000118

PATIENT
  Sex: Female
  Weight: 63.502 kg

DRUGS (8)
  1. DUPIXENT [Suspect]
     Active Substance: DUPILUMAB
     Indication: Dermatitis
     Dosage: 300 MG, QOW
     Route: 058
  2. MOTRIN IB [Concomitant]
     Active Substance: IBUPROFEN
  3. CLARITIN-D 12 HOUR [Concomitant]
     Active Substance: LORATADINE\PSEUDOEPHEDRINE SULFATE
  4. TACROLIMUS [Concomitant]
     Active Substance: TACROLIMUS
  5. FLONASE SENSIMIST ALLERGY RELIEF [Concomitant]
     Active Substance: FLUTICASONE FUROATE
  6. ATORVASTATIN CALCIUM [Concomitant]
     Active Substance: ATORVASTATIN CALCIUM
  7. CARVEDILOL [Concomitant]
     Active Substance: CARVEDILOL
     Dosage: CARVEDILOL ER 10 MG CPMP 24HR
  8. LISINOPRIL [Concomitant]
     Active Substance: LISINOPRIL

REACTIONS (2)
  - Skin disorder [Unknown]
  - Product use in unapproved indication [Unknown]
